FAERS Safety Report 23177362 (Version 1)
Quarter: 2023Q4

REPORT INFORMATION
  Report Type: Spontaneous
  Country: CN (occurrence: CN)
  Receive Date: 20231113
  Receipt Date: 20231113
  Transmission Date: 20240110
  Serious: Yes (Hospitalization)
  Sender: FDA-Public Use
  Company Number: CN-BAYER-2023A161154

PATIENT
  Age: 54 Year
  Sex: Male
  Weight: 78 kg

DRUGS (2)
  1. CIPROFLOXACIN [Suspect]
     Active Substance: CIPROFLOXACIN
     Indication: Intracranial infection
     Dosage: 0.4 G, Q8HR
     Route: 041
     Dates: start: 20231025, end: 20231025
  2. HYDROCORTISONE [Concomitant]
     Active Substance: HYDROCORTISONE
     Dosage: 10 ML, QD
     Route: 041
     Dates: start: 20231025, end: 20231026

REACTIONS (5)
  - Palpitations [Recovered/Resolved]
  - Restlessness [Recovered/Resolved]
  - Aggression [Recovered/Resolved]
  - Soliloquy [Recovered/Resolved]
  - Off label use [None]

NARRATIVE: CASE EVENT DATE: 20231025
